FAERS Safety Report 21068399 (Version 1)
Quarter: 2022Q3

REPORT INFORMATION
  Report Type: Spontaneous
  Country: US (occurrence: None)
  Receive Date: 20220711
  Receipt Date: 20220711
  Transmission Date: 20221026
  Serious: Yes (Other)
  Sender: FDA-Public Use
  Company Number: None

PATIENT
  Age: 60 Year
  Sex: Male
  Weight: 104.4 kg

DRUGS (23)
  1. ACETAMINOPHEN\OXYCODONE HYDROCHLORIDE [Suspect]
     Active Substance: ACETAMINOPHEN\OXYCODONE HYDROCHLORIDE
     Indication: Spinal pain
     Dosage: FREQUENCY : TWICE A DAY;?
     Route: 048
     Dates: start: 20220518, end: 20220602
  2. ACETAMINOPHEN\OXYCODONE HYDROCHLORIDE [Suspect]
     Active Substance: ACETAMINOPHEN\OXYCODONE HYDROCHLORIDE
     Indication: Spinal fusion surgery
  3. GLIPIZIDE [Concomitant]
     Active Substance: GLIPIZIDE
  4. LISINOPRIL [Concomitant]
     Active Substance: LISINOPRIL
  5. OMEPRAZOLE [Concomitant]
     Active Substance: OMEPRAZOLE
  6. METAXALONE [Concomitant]
     Active Substance: METAXALONE
  7. Rosuvistatin [Concomitant]
  8. MOBIC [Concomitant]
     Active Substance: MELOXICAM
  9. METOPROLOL [Concomitant]
     Active Substance: METOPROLOL
  10. BANOPHEN [Concomitant]
     Active Substance: DIPHENHYDRAMINE HYDROCHLORIDE
  11. BASAGLAR [Concomitant]
     Active Substance: INSULIN GLARGINE
  12. SYMPROIC [Concomitant]
     Active Substance: NALDEMEDINE
  13. STEGLATRO [Concomitant]
     Active Substance: ERTUGLIFLOZIN PIDOLATE
  14. AMLODIPINE BESYLATE [Concomitant]
     Active Substance: AMLODIPINE BESYLATE
  15. PRILOCAINE [Concomitant]
     Active Substance: PRILOCAINE
  16. LIDOCAINE [Concomitant]
     Active Substance: LIDOCAINE
  17. DICLOFENAC [Concomitant]
     Active Substance: DICLOFENAC
  18. Super B Complex+Vitamin C [Concomitant]
  19. Calciium+D3 [Concomitant]
  20. OCUVITE [Concomitant]
     Active Substance: VITAMINS
  21. VITAMIN E [Concomitant]
     Active Substance: .ALPHA.-TOCOPHEROL
  22. VITAMIN C [Concomitant]
     Active Substance: ASCORBIC ACID
  23. TRIPLE MAGNESIUM COMPLEX [Concomitant]

REACTIONS (4)
  - Drug ineffective [None]
  - Product quality issue [None]
  - Constipation [None]
  - Abdominal pain [None]

NARRATIVE: CASE EVENT DATE: 20220620
